FAERS Safety Report 22390253 (Version 3)
Quarter: 2023Q2

REPORT INFORMATION
  Report Type: Spontaneous
  Country: US (occurrence: US)
  Receive Date: 20230531
  Receipt Date: 20230605
  Transmission Date: 20230721
  Serious: No
  Sender: FDA-Public Use
  Company Number: US-PFIZER INC-202300202312

PATIENT
  Age: 69 Year
  Sex: Female

DRUGS (1)
  1. COLESTID [Suspect]
     Active Substance: COLESTIPOL HYDROCHLORIDE
     Indication: Dyspepsia
     Dosage: 3 G, 2X/DAY (1GRAM TABLET 3 IN THE MORNING AND 3 AT NIGHT)

REACTIONS (7)
  - Quality of life decreased [Unknown]
  - Condition aggravated [Unknown]
  - Diarrhoea [Unknown]
  - Product supply issue [Unknown]
  - Product dose omission issue [Unknown]
  - Off label use [Unknown]
  - Drug effective for unapproved indication [Unknown]

NARRATIVE: CASE EVENT DATE: 20230512
